FAERS Safety Report 6222055-4 (Version None)
Quarter: 2009Q2

REPORT INFORMATION
  Report Type: 
  Country: None (occurrence: None)
  Receive Date: 20090608
  Receipt Date: 20090608
  Transmission Date: 20091009
  Serious: Yes (Hospitalization)
  Sender: FDA-Public Use
  Company Number: None

PATIENT
  Age: 53 Year
  Sex: Female
  Weight: 72.5755 kg

DRUGS (2)
  1. PROAIR HFA [Suspect]
     Indication: BRONCHITIS
     Dosage: 2 PUFFS 4 X ADAY 4X A DAY INHAL
     Route: 055
     Dates: start: 20080125, end: 20081026
  2. PROVENTIL [Suspect]
     Indication: CHRONIC OBSTRUCTIVE PULMONARY DISEASE

REACTIONS (3)
  - DEVICE MALFUNCTION [None]
  - DRUG INEFFECTIVE [None]
  - DYSPNOEA [None]
